FAERS Safety Report 7313354-3 (Version None)
Quarter: 2011Q1

REPORT INFORMATION
  Report Type: 
  Country: None (occurrence: None)
  Receive Date: 20110215
  Receipt Date: 20110215
  Transmission Date: 20110831
  Serious: No
  Sender: FDA-Public Use
  Company Number: None

PATIENT
  Age: 55 Year
  Sex: Female

DRUGS (1)
  1. FENTANYL-100 [Suspect]

REACTIONS (5)
  - PRODUCT ADHESION ISSUE [None]
  - SKIN DISORDER [None]
  - PRODUCT SUBSTITUTION ISSUE [None]
  - ERYTHEMA [None]
  - PRURITUS [None]
